FAERS Safety Report 18770690 (Version 1)
Quarter: 2021Q1

REPORT INFORMATION
  Report Type: Spontaneous
  Country: DK (occurrence: DK)
  Receive Date: 20210121
  Receipt Date: 20210121
  Transmission Date: 20210419
  Serious: Yes (Other)
  Sender: FDA-Public Use
  Company Number: NVSC2021DK011647

PATIENT
  Age: 9 Year
  Sex: Male

DRUGS (3)
  1. DEXAMETHASONE. [Suspect]
     Active Substance: DEXAMETHASONE
     Indication: NON-HODGKIN^S LYMPHOMA STAGE IV
     Dosage: UNK
     Route: 065
     Dates: start: 2016
  2. HYDROCORTISONE. [Suspect]
     Active Substance: HYDROCORTISONE
     Indication: NON-HODGKIN^S LYMPHOMA STAGE IV
     Dosage: UNK (DOSE: UNKNOWN. 3 TIMES TOO MUCH FOR A FEW DAYS IN NOV 2016. STRENGHT: UNKNOWN) (WRONG DOSE NOTE
     Route: 065
     Dates: start: 2016
  3. METHOTREXATE. [Suspect]
     Active Substance: METHOTREXATE
     Indication: NON-HODGKIN^S LYMPHOMA STAGE IV
     Dosage: UNK
     Route: 065
     Dates: start: 2016

REACTIONS (2)
  - Toxic encephalopathy [Unknown]
  - Incorrect dose administered [Unknown]

NARRATIVE: CASE EVENT DATE: 2016
